FAERS Safety Report 7929513-2 (Version None)
Quarter: 2011Q4

REPORT INFORMATION
  Report Type: 
  Country: None (occurrence: None)
  Receive Date: 20111121
  Receipt Date: 20111108
  Transmission Date: 20120403
  Serious: No
  Sender: FDA-Public Use
  Company Number: US-ELI_LILLY_AND_COMPANY-US201111003850

PATIENT
  Age: 76 Year
  Sex: Male

DRUGS (2)
  1. CRESTOR [Concomitant]
     Indication: HYPERLIPIDAEMIA
     Dosage: UNK
  2. CYMBALTA [Suspect]
     Indication: BACK PAIN
     Dosage: 30 MG, QD
     Dates: start: 20100501

REACTIONS (1)
  - HEPATIC ENZYME INCREASED [None]
